FAERS Safety Report 9884271 (Version 1)
Quarter: 2014Q1

REPORT INFORMATION
  Report Type: Spontaneous
  Country: US (occurrence: US)
  Receive Date: 20140210
  Receipt Date: 20140210
  Transmission Date: 20141002
  Serious: No
  Sender: FDA-Public Use
  Company Number: US-ALLERGAN-1315999US

PATIENT
  Age: 55 Year
  Sex: Female

DRUGS (5)
  1. BOTOX COSMETIC [Suspect]
     Indication: SKIN WRINKLING
     Dosage: UNK, SINGLE
     Route: 030
     Dates: start: 20131002, end: 20131002
  2. JUVEDERM [Suspect]
     Indication: SKIN WRINKLING
     Dosage: UNK
     Dates: start: 20131002, end: 20131002
  3. VICOPROFEN [Concomitant]
     Indication: NECK PAIN
     Dosage: UNK
     Route: 048
  4. HRT [Concomitant]
     Indication: HOT FLUSH
     Dosage: UNK
  5. ANGELIQUE HERB [Concomitant]
     Indication: CONTUSION
     Route: 048

REACTIONS (2)
  - Drug ineffective [Unknown]
  - Injection site inflammation [Recovered/Resolved]
